FAERS Safety Report 7478509-6 (Version None)
Quarter: 2011Q2

REPORT INFORMATION
  Report Type: 
  Country: None (occurrence: None)
  Receive Date: 20110513
  Receipt Date: 20110505
  Transmission Date: 20111010
  Serious: Yes (Other)
  Sender: FDA-Public Use
  Company Number: PHHY2011US39827

PATIENT
  Sex: Male
  Weight: 84.807 kg

DRUGS (16)
  1. PLAVIX [Concomitant]
     Dosage: 75 MG, UNK
  2. PRISTIQ [Concomitant]
     Dosage: 50 MG, UNK
  3. OMEPRAZOLE [Concomitant]
     Dosage: 40 MG, UNK
  4. LEVOTHROID [Concomitant]
     Dosage: 100 UG, UNK
  5. FERROUS SULFATE TAB [Concomitant]
  6. DILTIAZEM [Concomitant]
     Dosage: 120 MG, UNK
  7. MULTI-VITAMIN [Concomitant]
  8. GLEEVEC [Suspect]
     Dosage: 300 MG, QD
     Route: 048
  9. ROPINIROLE [Concomitant]
     Dosage: 0.25 MG, UNK
  10. CARVEDILOL [Concomitant]
     Dosage: 12.5 MG, UNK
  11. LIPITOR [Concomitant]
     Dosage: 10 MG, UNK
  12. LISINOPRIL [Concomitant]
     Dosage: 2.5 MG, UNK
  13. ALBUTEROL [Concomitant]
     Dosage: 1.25/3 MG
  14. GABAPENTIN [Concomitant]
     Dosage: 100 MG, UNK
  15. PROVIGIL [Concomitant]
     Dosage: 100 MG, UNK
  16. LORATADINE [Concomitant]
     Dosage: UNK

REACTIONS (2)
  - BRONCHITIS [None]
  - FATIGUE [None]
